FAERS Safety Report 16203173 (Version 1)
Quarter: 2019Q2

REPORT INFORMATION
  Report Type: Spontaneous
  Country: IT (occurrence: IT)
  Receive Date: 20190416
  Receipt Date: 20190416
  Transmission Date: 20190711
  Serious: Yes (Death)
  Sender: FDA-Public Use
  Company Number: IT-PFIZER INC-2019156283

PATIENT
  Sex: Female
  Weight: .33 kg

DRUGS (11)
  1. ATOSIBAN ACETATE [Suspect]
     Active Substance: ATOSIBAN
     Indication: PREMATURE DELIVERY
     Dosage: 6.75 MG, UNK (OVER 1 MIN)
     Route: 064
  2. ATOSIBAN ACETATE [Suspect]
     Active Substance: ATOSIBAN
     Dosage: UNK (40 ML/MIN, CONTINUOUS INFUSION)
     Route: 064
  3. BETAMETHASONE ACETATE [Suspect]
     Active Substance: BETAMETHASONE ACETATE
     Dosage: 12 MG, 1X/DAY
     Route: 064
  4. CHLORPROMAZINE MALEATE [Suspect]
     Active Substance: CHLORPROMAZINE
     Indication: HYPEREMESIS GRAVIDARUM
     Dosage: UNK
     Route: 064
  5. MAGNESIUM SULFATE. [Suspect]
     Active Substance: MAGNESIUM SULFATE
     Dosage: UNK (INFUSION; 1 G/H I.V. FOR 24 H)
     Route: 064
  6. ATOSIBAN ACETATE [Suspect]
     Active Substance: ATOSIBAN
     Dosage: UNK (120 ML/MIN, CONTINUOUS INFUSION)
     Route: 064
  7. MAGNESIUM SULFATE. [Suspect]
     Active Substance: MAGNESIUM SULFATE
     Dosage: 24 G, DAILY (INFUSION; MAINTENANCE WITH 24 G UNTIL DAY 5)
     Route: 064
  8. ATOSIBAN ACETATE [Suspect]
     Active Substance: ATOSIBAN
     Dosage: UNK (REPEATED FOR ANOTHER 48 H)
     Route: 064
  9. BEMIPARIN [Suspect]
     Active Substance: BEMIPARIN
     Indication: THROMBOSIS PROPHYLAXIS
     Dosage: 3500 IU, DAILY
     Route: 064
  10. CEFAZOLIN [Suspect]
     Active Substance: CEFAZOLIN
     Indication: INFECTION PROPHYLAXIS
     Dosage: 1 G, 3X/DAY
     Route: 064
  11. MAGNESIUM SULFATE. [Suspect]
     Active Substance: MAGNESIUM SULFATE
     Dosage: 4 G, UNK (INFUSION, OVER 20 MIN)
     Route: 064

REACTIONS (2)
  - Premature baby [Fatal]
  - Maternal exposure during pregnancy [Fatal]
